FAERS Safety Report 5225446-3 (Version None)
Quarter: 2007Q1

REPORT INFORMATION
  Report Type: 
  Country: None (occurrence: None)
  Receive Date: 20070131
  Receipt Date: 20061222
  Transmission Date: 20070707
  Serious: Yes (Other)
  Sender: FDA-Public Use
  Company Number: GB-PFIZER INC-2006092603

PATIENT
  Sex: Male
  Weight: 3.55 kg

DRUGS (1)
  1. LYRICA [Suspect]
     Dates: start: 20060717, end: 20060717

REACTIONS (2)
  - APGAR SCORE LOW [None]
  - DRUG EXPOSURE DURING PREGNANCY [None]
